FAERS Safety Report 7988240-6 (Version None)
Quarter: 2011Q4

REPORT INFORMATION
  Report Type: 
  Country: None (occurrence: None)
  Receive Date: 20111216
  Receipt Date: 20110609
  Transmission Date: 20120403
  Serious: No
  Sender: FDA-Public Use
  Company Number: US-BRISTOL-MYERS SQUIBB COMPANY-15823198

PATIENT
  Age: 4 Decade
  Sex: Female

DRUGS (3)
  1. VYVANSE [Concomitant]
  2. ABILIFY [Suspect]
     Indication: BIPOLAR DISORDER
  3. LAMICTAL [Concomitant]

REACTIONS (2)
  - DYSKINESIA [None]
  - BLEPHAROSPASM [None]
